FAERS Safety Report 4854830-2 (Version None)
Quarter: 2005Q4

REPORT INFORMATION
  Report Type: 
  Country: None (occurrence: None)
  Receive Date: 20051215
  Receipt Date: 20051205
  Transmission Date: 20060501
  Serious: Yes (Hospitalization, Other)
  Sender: FDA-Public Use
  Company Number: PHFR2005GB03955

PATIENT
  Age: 85 Year
  Sex: Male

DRUGS (4)
  1. CYCLOSPORINE [Suspect]
     Indication: LEUKAEMIA
     Dosage: 50 MG, BID
     Route: 048
  2. NIZATIDINE [Suspect]
     Indication: NAUSEA
     Dosage: 150 MG, BID
     Route: 048
     Dates: start: 20051014, end: 20051028
  3. BENDROFLUAZIDE [Concomitant]
     Dosage: 2.5MG/DAY
     Route: 048
  4. ATENOLOL [Concomitant]
     Dosage: 25MG/DAY
     Route: 048

REACTIONS (6)
  - ALANINE AMINOTRANSFERASE INCREASED [None]
  - BLOOD ALKALINE PHOSPHATASE INCREASED [None]
  - BLOOD BILIRUBIN INCREASED [None]
  - BLOOD CREATININE INCREASED [None]
  - HEPATIC ENZYME INCREASED [None]
  - JAUNDICE [None]
